FAERS Safety Report 11738017 (Version 1)
Quarter: 2015Q4

REPORT INFORMATION
  Report Type: Spontaneous
  Country: US (occurrence: US)
  Receive Date: 20151110
  Receipt Date: 20151110
  Transmission Date: 20160304
  Serious: No
  Sender: FDA-Public Use
  Company Number: US-ELI_LILLY_AND_COMPANY-US201207003287

PATIENT
  Sex: Female

DRUGS (4)
  1. AMBIEN [Concomitant]
     Active Substance: ZOLPIDEM TARTRATE
     Dosage: 2.5 MG, UNK
  2. FORTEO [Suspect]
     Active Substance: TERIPARATIDE
     Indication: OSTEOPOROSIS
     Dosage: UNK, QD
     Dates: start: 20120621
  3. AMBIEN [Concomitant]
     Active Substance: ZOLPIDEM TARTRATE
     Dosage: 3.1 MG, UNK
  4. NALTREXONE [Concomitant]
     Active Substance: NALTREXONE
     Indication: MULTIPLE SCLEROSIS
     Dosage: UNK
     Dates: start: 2007

REACTIONS (13)
  - Neuralgia [Unknown]
  - Radicular pain [Unknown]
  - Insomnia [Unknown]
  - Palpitations [Unknown]
  - Spinal column injury [Unknown]
  - Hallucination [Unknown]
  - Multiple sclerosis [Unknown]
  - Pain in extremity [Not Recovered/Not Resolved]
  - Hallucination, auditory [Unknown]
  - Hallucination, visual [Unknown]
  - Nightmare [Unknown]
  - Drug interaction [Unknown]
  - Poor quality sleep [Unknown]
